FAERS Safety Report 4494391-3 (Version None)
Quarter: 2004Q4

REPORT INFORMATION
  Report Type: 
  Country: None (occurrence: None)
  Receive Date: 20041104
  Receipt Date: 20041104
  Transmission Date: 20050328
  Serious: Yes (Life-Threatening)
  Sender: FDA-Public Use
  Company Number: None

PATIENT
  Age: 23 Year
  Sex: Female
  Weight: 49.8957 kg

DRUGS (1)
  1. ZOLOFT [Suspect]
     Indication: DEPRESSION
     Dosage: 1 X DAY, 7X 25 MG 1 WEEK, 7X50 MG 1 WK
     Dates: start: 20010214, end: 20010228

REACTIONS (4)
  - FEELING ABNORMAL [None]
  - INCOHERENT [None]
  - LETHARGY [None]
  - SELF-MEDICATION [None]
